FAERS Safety Report 14797444 (Version 1)
Quarter: 2018Q2

REPORT INFORMATION
  Report Type: Spontaneous
  Country: US (occurrence: US)
  Receive Date: 20180424
  Receipt Date: 20180424
  Transmission Date: 20180711
  Serious: No
  Sender: FDA-Public Use
  Company Number: US-TEVA-815418USA

PATIENT
  Sex: Female

DRUGS (1)
  1. OLANZAPINE TABLETS 2.5MG TEVA [Suspect]
     Active Substance: OLANZAPINE
     Dates: start: 201408

REACTIONS (2)
  - Wrong technique in product usage process [Unknown]
  - Palpitations [Unknown]

NARRATIVE: CASE EVENT DATE: 2017
